FAERS Safety Report 19237001 (Version 1)
Quarter: 2021Q2

REPORT INFORMATION
  Report Type: Spontaneous
  Country: US (occurrence: US)
  Receive Date: 20210508
  Receipt Date: 20210508
  Transmission Date: 20210717
  Serious: Yes (Hospitalization)
  Sender: FDA-Public Use
  Company Number: None

PATIENT
  Age: 26 Month
  Sex: Female
  Weight: 12.5 kg

DRUGS (6)
  1. VINCRISTINE SULFATE. [Suspect]
     Active Substance: VINCRISTINE SULFATE
     Dates: end: 20210503
  2. ONCASPAR [Suspect]
     Active Substance: PEGASPARGASE
     Dates: end: 20210503
  3. MERCAPTOPURINE. [Suspect]
     Active Substance: MERCAPTOPURINE
     Dates: end: 20210502
  4. CYTARABINE. [Suspect]
     Active Substance: CYTARABINE
     Dates: end: 20210429
  5. METHOTREXATE. [Suspect]
     Active Substance: METHOTREXATE
     Dates: end: 20210503
  6. CYCLOPHOSPHAMIDE. [Suspect]
     Active Substance: CYCLOPHOSPHAMIDE
     Dates: end: 20210419

REACTIONS (6)
  - Pulmonary congestion [None]
  - Human rhinovirus test positive [None]
  - Rhinorrhoea [None]
  - Pyrexia [None]
  - Rubulavirus test positive [None]
  - Enterovirus test positive [None]

NARRATIVE: CASE EVENT DATE: 20210506
